FAERS Safety Report 16653346 (Version 1)
Quarter: 2019Q3

REPORT INFORMATION
  Report Type: Spontaneous
  Country: NL (occurrence: NL)
  Receive Date: 20190731
  Receipt Date: 20190731
  Transmission Date: 20191004
  Serious: Yes (Other)
  Sender: FDA-Public Use
  Company Number: NL-PFIZER INC-2019319274

PATIENT
  Age: 50 Year
  Sex: Male
  Weight: 73.3 kg

DRUGS (11)
  1. TRACYDAL [Suspect]
     Active Substance: TRANYLCYPROMINE SULFATE
     Dosage: 30 MG, 1X/DAY
     Route: 048
     Dates: start: 20170809, end: 20170825
  2. RANITIDINE. [Concomitant]
     Active Substance: RANITIDINE
     Dosage: 300 MG, ALTERNATE DAY
     Dates: start: 20170823
  3. VITAMIN D [COLECALCIFEROL] [Concomitant]
     Active Substance: CHOLECALCIFEROL
     Dosage: 1600 IU/KG, UNK
  4. MORPHINE [Concomitant]
     Active Substance: MORPHINE
     Dosage: 10 MG, UNK
     Dates: start: 20170831
  5. PRIADEL [LITHIUM CARBONATE] [Concomitant]
     Active Substance: LITHIUM CARBONATE
     Dosage: 1200 MG, UNK
     Dates: start: 201705
  6. DOSTINEX [Suspect]
     Active Substance: CABERGOLINE
     Indication: PROLACTIN-PRODUCING PITUITARY TUMOUR
     Dosage: 0.75 MG, WEEKLY
     Dates: start: 200803
  7. TRACYDAL [Suspect]
     Active Substance: TRANYLCYPROMINE SULFATE
     Dosage: 20 MG, 1X/DAY
     Route: 048
     Dates: start: 20170726, end: 20170809
  8. TRACYDAL [Suspect]
     Active Substance: TRANYLCYPROMINE SULFATE
     Dosage: 40 MG, 1X/DAY
     Route: 048
     Dates: start: 20170825
  9. TRACYDAL [Suspect]
     Active Substance: TRANYLCYPROMINE SULFATE
     Indication: BIPOLAR DISORDER
     Dosage: 10 MG, 1X/DAY
     Route: 048
     Dates: start: 20170712, end: 20170726
  10. PRIADEL [LITHIUM CARBONATE] [Concomitant]
     Active Substance: LITHIUM CARBONATE
     Dosage: 1200 MG, UNK
     Dates: start: 200307, end: 200808
  11. EUTHYROX [Concomitant]
     Active Substance: LEVOTHYROXINE SODIUM
     Dosage: 100 UG, UNK

REACTIONS (14)
  - Hypoaesthesia [Not Recovered/Not Resolved]
  - Fatigue [Not Recovered/Not Resolved]
  - Hyperhidrosis [Not Recovered/Not Resolved]
  - Depression [Not Recovered/Not Resolved]
  - Hypertension [Unknown]
  - Diarrhoea [Recovered/Resolved]
  - Chest discomfort [Not Recovered/Not Resolved]
  - Headache [Not Recovered/Not Resolved]
  - Palpitations [Not Recovered/Not Resolved]
  - Cardiac discomfort [Not Recovered/Not Resolved]
  - Insomnia [Not Recovered/Not Resolved]
  - Chest pain [Not Recovered/Not Resolved]
  - Vertigo [Not Recovered/Not Resolved]
  - Contraindicated product administered [Unknown]

NARRATIVE: CASE EVENT DATE: 20170714
